FAERS Safety Report 24444983 (Version 2)
Quarter: 2024Q4

REPORT INFORMATION
  Report Type: Report from Study
  Country: US (occurrence: US)
  Receive Date: 20241016
  Receipt Date: 20241017
  Transmission Date: 20250115
  Serious: No
  Sender: ROCHE
  Company Number: US-ROCHE-3043492

PATIENT
  Age: 41 Year
  Sex: Female
  Weight: 62.6 kg

DRUGS (1)
  1. RITUXAN [Suspect]
     Active Substance: RITUXIMAB
     Indication: Cerebral arteritis
     Dosage: INFUSE AT 0 WEEK AND 2 WEEKS EVERY 6 MONTHS
     Route: 042

REACTIONS (2)
  - Off label use [Unknown]
  - Malaise [Unknown]
